FAERS Safety Report 6257329-4 (Version None)
Quarter: 2009Q3

REPORT INFORMATION
  Report Type: 
  Country: None (occurrence: None)
  Receive Date: 20090706
  Receipt Date: 20090622
  Transmission Date: 20100115
  Serious: Yes (Other)
  Sender: FDA-Public Use
  Company Number: PHHY2008CN29737

PATIENT
  Age: 27 Year
  Sex: Female

DRUGS (1)
  1. SEBIVO [Suspect]
     Dosage: UNK
     Route: 048
     Dates: start: 20081004, end: 20081011

REACTIONS (2)
  - ABORTION INDUCED [None]
  - DRUG EXPOSURE DURING PREGNANCY [None]
